FAERS Safety Report 8978249 (Version 1)
Quarter: 2012Q4

REPORT INFORMATION
  Report Type: Report from Study
  Country: US (occurrence: US)
  Receive Date: 20121220
  Receipt Date: 20121220
  Transmission Date: 20130627
  Serious: Yes (Hospitalization)
  Sender: FDA-Public Use
  Company Number: US-US-EMD SERONO, INC.-7182797

PATIENT
  Sex: Female

DRUGS (9)
  1. REBIF [Suspect]
     Indication: MULTIPLE SCLEROSIS
     Route: 058
     Dates: start: 20101217
  2. BUSPAR [Concomitant]
     Indication: DEPRESSED MOOD
  3. ABILIFY [Concomitant]
     Indication: DEPRESSED MOOD
  4. DIAZEPAM [Concomitant]
     Indication: DEPRESSED MOOD
  5. PAROXETINE [Concomitant]
     Indication: DEPRESSED MOOD
  6. RISPERDAL [Concomitant]
     Indication: DEPRESSED MOOD
  7. LYRICA [Concomitant]
     Indication: PRODUCT USED FOR UNKNOWN INDICATION
  8. ZOLPIDEM [Concomitant]
     Indication: PRODUCT USED FOR UNKNOWN INDICATION
  9. LISINOPRIL [Concomitant]
     Indication: HYPERTENSION

REACTIONS (5)
  - Upper limb fracture [Not Recovered/Not Resolved]
  - Femur fracture [Recovered/Resolved]
  - Tibia fracture [Recovered/Resolved]
  - Fall [Recovered/Resolved]
  - Multiple sclerosis relapse [Recovered/Resolved]
